FAERS Safety Report 5786779-5 (Version None)
Quarter: 2008Q2

REPORT INFORMATION
  Report Type: 
  Country: None (occurrence: None)
  Receive Date: 20080624
  Receipt Date: 20080617
  Transmission Date: 20081010
  Serious: Yes (Other)
  Sender: FDA-Public Use
  Company Number: US-AMGEN-QUU285538

PATIENT
  Sex: Female
  Weight: 69 kg

DRUGS (3)
  1. ENBREL [Suspect]
     Indication: RHEUMATOID ARTHRITIS
     Route: 058
     Dates: start: 20030916
  2. METHOTREXATE [Concomitant]
     Route: 048
     Dates: start: 19970101
  3. AZATHIOPRINE [Concomitant]
     Dates: start: 19970101, end: 20040324

REACTIONS (2)
  - NODULE [None]
  - UTERINE CANCER [None]
